FAERS Safety Report 8601724-2 (Version None)
Quarter: 2012Q3

REPORT INFORMATION
  Report Type: 
  Country: None (occurrence: None)
  Receive Date: 20120817
  Receipt Date: 20120223
  Transmission Date: 20120928
  Serious: Yes (Other)
  Sender: FDA-Public Use
  Company Number: US-BRISTOL-MYERS SQUIBB COMPANY-16390064

PATIENT
  Age: 51 Year
  Sex: Female

DRUGS (1)
  1. SPRYCEL [Suspect]
     Dosage: DOSAGE:50MG
     Dates: start: 20110201

REACTIONS (1)
  - PLEURAL EFFUSION [None]
